FAERS Safety Report 24073182 (Version 2)
Quarter: 2024Q3

REPORT INFORMATION
  Report Type: Spontaneous
  Country: JP (occurrence: JP)
  Receive Date: 20240710
  Receipt Date: 20240806
  Transmission Date: 20241016
  Serious: Yes (Other)
  Sender: BAYER
  Company Number: JP-BAYER-2024A097030

PATIENT
  Age: 70 Year
  Sex: Male

DRUGS (3)
  1. KERENDIA [Suspect]
     Active Substance: FINERENONE
     Indication: Organ preservation
     Dosage: DAILY DOSE 10 MG
     Dates: start: 20240530, end: 20240703
  2. KERENDIA [Suspect]
     Active Substance: FINERENONE
     Indication: Organ preservation
     Dosage: DAILY DOSE 5 MG
     Dates: start: 20240704
  3. DAPAGLIFLOZIN [Concomitant]
     Active Substance: DAPAGLIFLOZIN

REACTIONS (3)
  - Renal impairment [None]
  - Dizziness postural [None]
  - Off label use [None]
